FAERS Safety Report 8561536-5 (Version None)
Quarter: 2012Q3

REPORT INFORMATION
  Report Type: 
  Country: None (occurrence: None)
  Receive Date: 20120802
  Receipt Date: 20120725
  Transmission Date: 20120928
  Serious: Yes (Hospitalization, Disabling, Other)
  Sender: FDA-Public Use
  Company Number: US-009507513-1205USA02850

PATIENT

DRUGS (7)
  1. GARLIC [Suspect]
  2. OMEGA-3-ACID ETHYL ESTERS [Suspect]
  3. VITAMINS (UNSPECIFIED) [Suspect]
     Dosage: 1000 MG, UNK
  4. CALCIUM (UNSPECIFIED) [Concomitant]
     Dosage: 1500 MG, UNK
  5. VITAMIN D [Suspect]
  6. FOSAMAX [Suspect]
     Indication: OSTEOPOROSIS
     Dosage: UNK
     Route: 048
     Dates: start: 19980101, end: 20100909
  7. ASCORBIC ACID [Concomitant]
     Dosage: 500 MG, UNK

REACTIONS (33)
  - TOOTH DISORDER [None]
  - SQUAMOUS CELL CARCINOMA OF SKIN [None]
  - STRESS FRACTURE [None]
  - LOW TURNOVER OSTEOPATHY [None]
  - BLOOD CHOLESTEROL INCREASED [None]
  - HYPERLIPIDAEMIA [None]
  - ACTINIC KERATOSIS [None]
  - OSTEOPOROSIS [None]
  - DIZZINESS [None]
  - URINARY INCONTINENCE [None]
  - VARICOSE VEIN [None]
  - COUGH [None]
  - FEMUR FRACTURE [None]
  - HELICOBACTER INFECTION [None]
  - OSTEOPENIA [None]
  - DIVERTICULUM [None]
  - HIATUS HERNIA [None]
  - RECTOCELE [None]
  - CYSTOCELE [None]
  - LUNG NEOPLASM [None]
  - HYPERTENSIVE NEPHROPATHY [None]
  - DERMATITIS [None]
  - HYPERTENSION [None]
  - OESOPHAGITIS [None]
  - DIARRHOEA [None]
  - COLONIC POLYP [None]
  - OSTEOARTHRITIS [None]
  - NAUSEA [None]
  - COLITIS [None]
  - AORTIC ARTERIOSCLEROSIS [None]
  - RENAL FAILURE [None]
  - FALL [None]
  - VAGINAL PROLAPSE [None]
